FAERS Safety Report 8819007 (Version 1)
Quarter: 2012Q4

REPORT INFORMATION
  Report Type: Report from Study
  Country: ES (occurrence: ES)
  Receive Date: 20121001
  Receipt Date: 20121001
  Transmission Date: 20130627
  Serious: Yes (Congenital Anomaly)
  Sender: FDA-Public Use
  Company Number: ES-UCBSA-067560

PATIENT

DRUGS (1)
  1. LEVETIRACETAM [Suspect]
     Indication: EPILEPSY
     Dosage: DAILY DOSE: 1000(FIRST TRIMESTER)
     Route: 064

REACTIONS (2)
  - Talipes [Unknown]
  - Foetal exposure during pregnancy [Recovered/Resolved]
